FAERS Safety Report 9966824 (Version 2)
Quarter: 2014Q1

REPORT INFORMATION
  Report Type: Report from Study
  Country: US (occurrence: US)
  Receive Date: 20140305
  Receipt Date: 20140305
  Transmission Date: 20141002
  Serious: No
  Sender: FDA-Public Use
  Company Number: US-ABBVIE-13P-163-1069894-00

PATIENT
  Age: 59 Year
  Sex: Female

DRUGS (18)
  1. HUMIRA [Suspect]
     Indication: RHEUMATOID ARTHRITIS
     Route: 058
     Dates: start: 201303
  2. LIDOCAINE [Concomitant]
     Indication: PRODUCT USED FOR UNKNOWN INDICATION
     Dosage: APPLY TO AREA OF PAIN 12 HOURS ON AND 12 HOURS OFF
     Route: 061
  3. ULTRAM [Concomitant]
     Indication: PAIN
     Dosage: AS REQUIRED
  4. PREDNISONE [Concomitant]
     Indication: RHEUMATOID ARTHRITIS
     Dosage: TAPERING
  5. PRILOSEC [Concomitant]
     Indication: GASTROOESOPHAGEAL REFLUX DISEASE
  6. MVI [Concomitant]
     Indication: PRODUCT USED FOR UNKNOWN INDICATION
     Dosage: DAILY
  7. UNKNOWN MEDICATION [Concomitant]
     Indication: HAIR DISORDER
  8. UNKNOWN MEDICATION [Concomitant]
     Indication: NAIL DISORDER
  9. UNKNOWN MEDICATION [Concomitant]
     Indication: SKIN DISORDER
  10. D3 [Concomitant]
     Indication: PRODUCT USED FOR UNKNOWN INDICATION
  11. VITAMIN C [Concomitant]
     Indication: PRODUCT USED FOR UNKNOWN INDICATION
  12. CALCIUM [Concomitant]
     Indication: PRODUCT USED FOR UNKNOWN INDICATION
  13. MAGNESIUM [Concomitant]
     Indication: PRODUCT USED FOR UNKNOWN INDICATION
  14. OMEGA 3 FISH OIL [Concomitant]
     Indication: PRODUCT USED FOR UNKNOWN INDICATION
  15. FLAXSEED [Concomitant]
     Indication: PRODUCT USED FOR UNKNOWN INDICATION
  16. KELP [Concomitant]
     Indication: PRODUCT USED FOR UNKNOWN INDICATION
     Dosage: DAILY
  17. B12 [Concomitant]
     Indication: PRODUCT USED FOR UNKNOWN INDICATION
     Dosage: LIQUID
  18. PROBIOTIC [Concomitant]
     Indication: PRODUCT USED FOR UNKNOWN INDICATION
     Dosage: 10-20 BILLION MICRO-ORGANISMS DAILY

REACTIONS (30)
  - Joint range of motion decreased [Not Recovered/Not Resolved]
  - Neoplasm [Unknown]
  - Erythema [Not Recovered/Not Resolved]
  - Local swelling [Not Recovered/Not Resolved]
  - Joint swelling [Not Recovered/Not Resolved]
  - Arthralgia [Not Recovered/Not Resolved]
  - Pain in extremity [Not Recovered/Not Resolved]
  - Arthralgia [Not Recovered/Not Resolved]
  - Joint swelling [Not Recovered/Not Resolved]
  - Joint stiffness [Not Recovered/Not Resolved]
  - Joint swelling [Not Recovered/Not Resolved]
  - Drug ineffective [Not Recovered/Not Resolved]
  - Arthralgia [Not Recovered/Not Resolved]
  - Pain in extremity [Not Recovered/Not Resolved]
  - Musculoskeletal pain [Not Recovered/Not Resolved]
  - Musculoskeletal pain [Not Recovered/Not Resolved]
  - Pain in extremity [Not Recovered/Not Resolved]
  - Joint stiffness [Not Recovered/Not Resolved]
  - Joint stiffness [Not Recovered/Not Resolved]
  - Hypoaesthesia [Recovered/Resolved]
  - Bone disorder [Not Recovered/Not Resolved]
  - Joint effusion [Not Recovered/Not Resolved]
  - Arthropathy [Unknown]
  - Mass [Not Recovered/Not Resolved]
  - Sensory disturbance [Not Recovered/Not Resolved]
  - Local swelling [Not Recovered/Not Resolved]
  - Joint swelling [Unknown]
  - Injection site urticaria [Not Recovered/Not Resolved]
  - Injection site pruritus [Not Recovered/Not Resolved]
  - Injection site bruising [Not Recovered/Not Resolved]
